FAERS Safety Report 16701432 (Version 5)
Quarter: 2020Q2

REPORT INFORMATION
  Report Type: Spontaneous
  Country: BR (occurrence: BR)
  Receive Date: 20190814
  Receipt Date: 20200622
  Transmission Date: 20200713
  Serious: Yes (Death, Hospitalization, Other)
  Sender: FDA-Public Use
  Company Number: BR-GLAXOSMITHKLINE-BR2019GSK099241

PATIENT
  Age: 81 Year
  Sex: Female

DRUGS (1)
  1. NUCALA [Suspect]
     Active Substance: MEPOLIZUMAB
     Indication: ASTHMA
     Dosage: 100 MG, UNK
     Dates: start: 20190312

REACTIONS (10)
  - Fall [Recovering/Resolving]
  - Death [Fatal]
  - Pain [Unknown]
  - Bronchitis [Unknown]
  - Wheezing [Unknown]
  - Asthma [Unknown]
  - Joint injury [Recovering/Resolving]
  - Asthmatic crisis [Unknown]
  - Therapeutic product effect incomplete [Unknown]
  - Cough [Unknown]

NARRATIVE: CASE EVENT DATE: 20200322
